FAERS Safety Report 4312117-0 (Version None)
Quarter: 2004Q1

REPORT INFORMATION
  Report Type: 
  Country: None (occurrence: None)
  Receive Date: 20040303
  Receipt Date: 20040219
  Transmission Date: 20041129
  Serious: Yes (Other)
  Sender: FDA-Public Use
  Company Number: 2004-BP-00732YA

PATIENT
  Age: 56 Year
  Sex: Male

DRUGS (3)
  1. HARNAL (TAMSULOSIN) (KA) [Suspect]
     Indication: BENIGN PROSTATIC HYPERPLASIA
     Dosage: 0.2 MG (0.2 MG 1 CP /DAY, QD)
     Dates: start: 20031002, end: 20031016
  2. SUNRYTHM (PILSICAINIDE HYDROCHLORIDE) (NR) [Suspect]
     Indication: ARRHYTHMIA
     Dosage: 100 MG (50 MG, 50 MG BID)
  3. EVIPROSTAT (EVIPROSTAT) (NR) [Concomitant]

REACTIONS (2)
  - DIZZINESS [None]
  - LOSS OF CONSCIOUSNESS [None]
